FAERS Safety Report 10157949 (Version 1)
Quarter: 2014Q2

REPORT INFORMATION
  Report Type: Spontaneous
  Country: US (occurrence: US)
  Receive Date: 20140507
  Receipt Date: 20140507
  Transmission Date: 20141212
  Serious: Yes (Other)
  Sender: FDA-Public Use
  Company Number: US-GLAXOSMITHKLINE-A1071230A

PATIENT
  Sex: Female

DRUGS (8)
  1. FLONASE [Suspect]
     Indication: ILL-DEFINED DISORDER
     Dosage: 2SPR AS REQUIRED
     Route: 045
  2. NORCO [Concomitant]
  3. LYRICA [Concomitant]
  4. PROTONIX [Concomitant]
  5. PLAVIX [Concomitant]
  6. CELEXA [Concomitant]
  7. LORAZEPAM [Concomitant]
  8. STOOL SOFTENER [Concomitant]

REACTIONS (5)
  - Blindness [Not Recovered/Not Resolved]
  - Macular degeneration [Not Recovered/Not Resolved]
  - Eye disorder [Not Recovered/Not Resolved]
  - Visual acuity reduced [Not Recovered/Not Resolved]
  - Spinal column stenosis [Not Recovered/Not Resolved]
